FAERS Safety Report 8272992-4 (Version None)
Quarter: 2012Q2

REPORT INFORMATION
  Report Type: 
  Country: None (occurrence: None)
  Receive Date: 20120406
  Receipt Date: 20120406
  Transmission Date: 20120825
  Serious: Yes (Other)
  Sender: FDA-Public Use
  Company Number: None

PATIENT
  Age: 86 Year
  Sex: Male
  Weight: 70.7611 kg

DRUGS (1)
  1. LEXISCAN [Suspect]
     Indication: PREOPERATIVE CARE
     Dosage: 0.4 MG 1 IV
     Route: 042
     Dates: start: 20120327

REACTIONS (4)
  - BLOOD PRESSURE DECREASED [None]
  - BRADYCARDIA [None]
  - URINARY INCONTINENCE [None]
  - LOSS OF CONSCIOUSNESS [None]
